FAERS Safety Report 7229986-7 (Version None)
Quarter: 2011Q1

REPORT INFORMATION
  Report Type: 
  Country: None (occurrence: None)
  Receive Date: 20110117
  Receipt Date: 20101207
  Transmission Date: 20110831
  Serious: Yes (Hospitalization, Other)
  Sender: FDA-Public Use
  Company Number: US-BAXTER-2010BH001152

PATIENT
  Age: 43 Year
  Sex: Male
  Weight: 69 kg

DRUGS (55)
  1. HEPARIN SODIUM INJECTION [Suspect]
     Indication: INTRAVENOUS CATHETER MANAGEMENT
     Route: 042
     Dates: start: 20070903, end: 20070928
  2. HEPARIN SODIUM 5,000 UNITS IN DEXTROSE 5% [Suspect]
     Indication: PRODUCT USED FOR UNKNOWN INDICATION
     Route: 065
     Dates: start: 20071007
  3. ATIVAN [Concomitant]
     Indication: PRODUCT USED FOR UNKNOWN INDICATION
     Route: 065
  4. HEPARIN SODIUM INJECTION [Suspect]
     Indication: CHEST PAIN
     Route: 042
     Dates: start: 20070903, end: 20070928
  5. HEPARIN SODIUM INJECTION [Suspect]
     Route: 010
     Dates: start: 20071003, end: 20071005
  6. HEPARIN SODIUM INJECTION [Suspect]
     Route: 010
     Dates: start: 20071003, end: 20071005
  7. AMLODIPINE [Concomitant]
     Indication: PRODUCT USED FOR UNKNOWN INDICATION
     Route: 065
  8. MINOXIDIL [Concomitant]
     Indication: PRODUCT USED FOR UNKNOWN INDICATION
     Route: 065
  9. PHOSLO [Concomitant]
     Indication: PRODUCT USED FOR UNKNOWN INDICATION
     Route: 065
  10. AZITHROMYCIN [Concomitant]
     Indication: PRODUCT USED FOR UNKNOWN INDICATION
     Route: 048
  11. NORCO [Concomitant]
     Indication: PRODUCT USED FOR UNKNOWN INDICATION
     Route: 048
  12. PROMETHAZINE W/ CODEINE [Concomitant]
     Indication: PRODUCT USED FOR UNKNOWN INDICATION
     Route: 048
  13. HEPARIN SODIUM INJECTION [Suspect]
     Route: 042
     Dates: start: 20070929, end: 20070929
  14. HEPARIN SODIUM INJECTION [Suspect]
     Route: 010
     Dates: start: 20071001
  15. HEPARIN SODIUM INJECTION [Suspect]
     Route: 041
     Dates: start: 20071005, end: 20071007
  16. HEPARIN SODIUM INJECTION [Suspect]
     Route: 040
     Dates: start: 20071003, end: 20071005
  17. TESSALON [Concomitant]
     Indication: PRODUCT USED FOR UNKNOWN INDICATION
     Route: 048
  18. HEPARIN SODIUM INJECTION [Suspect]
     Route: 042
     Dates: start: 20070929, end: 20070929
  19. HEPARIN SODIUM INJECTION [Suspect]
     Route: 040
     Dates: start: 20071003, end: 20071005
  20. HEPARIN SODIUM INJECTION [Suspect]
     Route: 040
     Dates: start: 20071003, end: 20071005
  21. PHENYTOIN [Concomitant]
     Indication: PRODUCT USED FOR UNKNOWN INDICATION
     Route: 065
  22. MIDODRINE HYDROCHLORIDE [Concomitant]
     Indication: PRODUCT USED FOR UNKNOWN INDICATION
     Route: 065
  23. GARAMYCIN [Concomitant]
     Indication: PRODUCT USED FOR UNKNOWN INDICATION
     Route: 047
  24. CLONIDINE [Concomitant]
     Indication: PRODUCT USED FOR UNKNOWN INDICATION
     Route: 048
  25. METOPROLOL [Concomitant]
     Indication: PRODUCT USED FOR UNKNOWN INDICATION
     Route: 048
  26. HEPARIN SODIUM INJECTION [Suspect]
     Route: 010
     Dates: start: 20071003, end: 20071005
  27. HEPARIN SODIUM INJECTION [Suspect]
     Route: 058
     Dates: start: 20071006, end: 20071007
  28. ANTIBIOTICS [Concomitant]
     Indication: PRODUCT USED FOR UNKNOWN INDICATION
     Route: 065
  29. ROCEPHIN [Concomitant]
     Indication: PRODUCT USED FOR UNKNOWN INDICATION
     Route: 065
  30. LORCET-HD [Concomitant]
     Indication: PRODUCT USED FOR UNKNOWN INDICATION
     Route: 048
  31. LOTRISONE [Concomitant]
     Indication: PRODUCT USED FOR UNKNOWN INDICATION
     Route: 003
  32. AMOXICILLIN AND CLAVULANATE POTASSIUM [Concomitant]
     Indication: PRODUCT USED FOR UNKNOWN INDICATION
     Route: 065
  33. TEGRETOL [Concomitant]
     Indication: PRODUCT USED FOR UNKNOWN INDICATION
     Route: 048
  34. HEPARIN SODIUM INJECTION [Suspect]
     Route: 042
     Dates: start: 20070929, end: 20070929
  35. HEPARIN SODIUM INJECTION [Suspect]
     Route: 010
     Dates: start: 20071001
  36. HEPARIN SODIUM INJECTION [Suspect]
     Route: 041
     Dates: start: 20071005, end: 20071007
  37. OXYCODONE [Concomitant]
     Indication: PRODUCT USED FOR UNKNOWN INDICATION
     Route: 065
  38. CORTICOSTEROID NOS [Concomitant]
     Indication: PRODUCT USED FOR UNKNOWN INDICATION
     Route: 065
  39. GARAMYCIN [Concomitant]
     Route: 047
  40. SENSIPAR [Concomitant]
     Indication: PRODUCT USED FOR UNKNOWN INDICATION
     Route: 065
  41. HEPARIN SODIUM INJECTION [Suspect]
     Route: 041
     Dates: start: 20071005, end: 20071007
  42. HEPARIN SODIUM INJECTION [Suspect]
     Route: 058
     Dates: start: 20071006, end: 20071007
  43. OXYCONTIN [Suspect]
     Indication: PRODUCT USED FOR UNKNOWN INDICATION
     Route: 065
     Dates: start: 20070101
  44. TYLENOL [Concomitant]
     Indication: PRODUCT USED FOR UNKNOWN INDICATION
     Route: 065
  45. FOSPHENYTOIN [Concomitant]
     Indication: PRODUCT USED FOR UNKNOWN INDICATION
     Route: 065
  46. ROCEPHIN [Concomitant]
     Route: 065
  47. ASPIRIN [Concomitant]
     Indication: PRODUCT USED FOR UNKNOWN INDICATION
     Route: 048
  48. HEPARIN SODIUM INJECTION [Suspect]
     Indication: HAEMODIALYSIS
     Route: 042
     Dates: start: 20070903, end: 20070928
  49. HEPARIN SODIUM INJECTION [Suspect]
     Route: 010
     Dates: start: 20071001
  50. HEPARIN SODIUM INJECTION [Suspect]
     Route: 058
     Dates: start: 20071006, end: 20071007
  51. ZEMURON [Concomitant]
     Indication: PRODUCT USED FOR UNKNOWN INDICATION
     Route: 065
  52. ATENOLOL [Concomitant]
     Indication: PRODUCT USED FOR UNKNOWN INDICATION
     Route: 065
  53. DEXAMETHASONE [Concomitant]
     Indication: PRODUCT USED FOR UNKNOWN INDICATION
     Route: 065
  54. NEPHRO-VITE RX [Concomitant]
     Indication: PRODUCT USED FOR UNKNOWN INDICATION
     Route: 048
  55. FOSRENOL [Concomitant]
     Indication: PRODUCT USED FOR UNKNOWN INDICATION
     Route: 065

REACTIONS (27)
  - OSTEOARTHRITIS [None]
  - BRONCHITIS [None]
  - ABDOMINAL PAIN [None]
  - DIZZINESS [None]
  - LACERATION [None]
  - SKIN BURNING SENSATION [None]
  - RASH [None]
  - NECK PAIN [None]
  - TONGUE HAEMORRHAGE [None]
  - CARDIAC DISORDER [None]
  - BLOOD PRESSURE DECREASED [None]
  - OEDEMA MOUTH [None]
  - RHINITIS ALLERGIC [None]
  - CONVULSION [None]
  - PHARYNGEAL OEDEMA [None]
  - SWOLLEN TONGUE [None]
  - CHEST PAIN [None]
  - SYNCOPE [None]
  - DYSPHAGIA [None]
  - HAEMORRHAGE SUBCUTANEOUS [None]
  - BACK PAIN [None]
  - ARTHRALGIA [None]
  - ACUTE RESPIRATORY FAILURE [None]
  - CHEST DISCOMFORT [None]
  - LIP SWELLING [None]
  - MUSCULOSKELETAL PAIN [None]
  - OTITIS MEDIA [None]
